FAERS Safety Report 20393554 (Version 1)
Quarter: 2022Q1

REPORT INFORMATION
  Report Type: Spontaneous
  Country: ES (occurrence: ES)
  Receive Date: 20220128
  Receipt Date: 20220128
  Transmission Date: 20220423
  Serious: Yes (Death, Other)
  Sender: FDA-Public Use
  Company Number: ES-PURDUE-USA-2022-0290947

PATIENT
  Age: 99 Year

DRUGS (4)
  1. LIDOCAINE [Suspect]
     Active Substance: LIDOCAINE
     Indication: Pain
     Dosage: 5% (6 AMPOULES), DAILY
     Route: 061
  2. ALCOHOL [Suspect]
     Active Substance: ALCOHOL
     Indication: Pain
     Dosage: 70 (600 CC)
     Route: 061
  3. ACETAMINOPHEN [Concomitant]
     Active Substance: ACETAMINOPHEN
     Indication: Pain
     Dosage: 1 G, Q6H
     Route: 065
  4. MORPHINE HYDROCHLORIDE [Concomitant]
     Active Substance: MORPHINE HYDROCHLORIDE
     Indication: Pain
     Dosage: 2.5 MG, Q6H

REACTIONS (1)
  - Death [Fatal]
